FAERS Safety Report 5014474-9 (Version None)
Quarter: 2006Q2

REPORT INFORMATION
  Report Type: 
  Country: None (occurrence: None)
  Receive Date: 20060525
  Receipt Date: 20060314
  Transmission Date: 20061013
  Serious: Yes (Death)
  Sender: FDA-Public Use
  Company Number: T200600497

PATIENT
  Age: 43 Year
  Sex: 0

DRUGS (1)
  1. MD-GASTROVIEW [Suspect]
     Dosage: PARENTERAL
     Route: 051

REACTIONS (1)
  - MEDICATION ERROR [None]
